FAERS Safety Report 12520490 (Version 3)
Quarter: 2018Q1

REPORT INFORMATION
  Report Type: Report from Study
  Country: AR (occurrence: AR)
  Receive Date: 20160701
  Receipt Date: 20180104
  Transmission Date: 20180508
  Serious: Yes (Hospitalization, Other)
  Sender: FDA-Public Use
  Company Number: PHHY2016AR089259

PATIENT
  Sex: Male

DRUGS (2)
  1. DIOVAN D [Suspect]
     Active Substance: HYDROCHLOROTHIAZIDE\VALSARTAN
     Indication: HYPERTENSION
     Dosage: 1 DF, QD (MORE THAN 5 YEAR AGO APPROX.)
     Route: 065
     Dates: end: 201502
  2. DIOVAN [Suspect]
     Active Substance: VALSARTAN
     Indication: HYPERTENSION
     Dosage: 1 DF (160 UNKNOWN UNITS), QD
     Route: 065
     Dates: end: 201501

REACTIONS (7)
  - Chronic obstructive pulmonary disease [Unknown]
  - Blood pressure decreased [Recovering/Resolving]
  - Pericardial effusion [Recovering/Resolving]
  - Gastrointestinal infection [Recovered/Resolved]
  - Colon cancer [Unknown]
  - Gastrointestinal erosion [Recovered/Resolved]
  - Fatigue [Recovering/Resolving]

NARRATIVE: CASE EVENT DATE: 2011
